FAERS Safety Report 6255736-7 (Version None)
Quarter: 2009Q3

REPORT INFORMATION
  Report Type: 
  Country: None (occurrence: None)
  Receive Date: 20090701
  Receipt Date: 20090615
  Transmission Date: 20100115
  Serious: Yes (Hospitalization)
  Sender: FDA-Public Use
  Company Number: 2009BI018656

PATIENT
  Age: 64 Year
  Sex: Male

DRUGS (20)
  1. ZEVALIN [Suspect]
     Indication: STEM CELL TRANSPLANT
     Dosage: 30 MCI; 1X; IV
     Route: 042
     Dates: start: 20090515, end: 20090515
  2. RITUXIMAB [Concomitant]
  3. POTASSION [Concomitant]
  4. POTASSIUM CHLORIDE [Concomitant]
  5. AMARYL [Concomitant]
  6. PANTECTA [Concomitant]
  7. POLARAMINE [Concomitant]
  8. ACETAMINOPHEN [Concomitant]
  9. ZYLORIC [Concomitant]
  10. ZOFRAN [Concomitant]
  11. MYCOSTATIN [Concomitant]
  12. TAVANIC [Concomitant]
  13. DIFLUCAN [Concomitant]
  14. URBASON [Concomitant]
  15. NEULASTA [Concomitant]
  16. VANCOMYCIN [Concomitant]
  17. CEFEPIME [Concomitant]
  18. PRIMPERAN [Concomitant]
  19. DAPTOMYCIN [Concomitant]
  20. AMARYL [Concomitant]

REACTIONS (2)
  - HEPATIC FUNCTION ABNORMAL [None]
  - PYREXIA [None]
